FAERS Safety Report 22958053 (Version 2)
Quarter: 2025Q2

REPORT INFORMATION
  Report Type: Report from Study
  Country: GB (occurrence: GB)
  Receive Date: 20230919
  Receipt Date: 20250429
  Transmission Date: 20250716
  Serious: Yes (Hospitalization, Other)
  Sender: AUROBINDO
  Company Number: GB-JNJFOC-20110106916

PATIENT
  Sex: Male

DRUGS (3)
  1. PAROXETINE HYDROCHLORIDE [Suspect]
     Active Substance: PAROXETINE HYDROCHLORIDE
     Indication: Obsessive-compulsive disorder
     Route: 065
  2. RISPERIDONE [Suspect]
     Active Substance: RISPERIDONE
     Indication: Obsessive-compulsive disorder
     Route: 065
  3. DESMOPRESSIN [Suspect]
     Active Substance: DESMOPRESSIN
     Indication: Ill-defined disorder
     Route: 065

REACTIONS (13)
  - Epilepsy [Recovered/Resolved]
  - Psychotic disorder [Recovered/Resolved]
  - Agitation [Recovered/Resolved]
  - Disorientation [Recovered/Resolved]
  - Confusional state [Recovered/Resolved]
  - Incontinence [Recovered/Resolved]
  - Muscle rigidity [Recovered/Resolved]
  - Blood creatine phosphokinase increased [Recovered/Resolved]
  - Pyrexia [Recovered/Resolved]
  - Pain [Recovered/Resolved]
  - Petechiae [Recovered/Resolved]
  - Vomiting [Recovered/Resolved]
  - Off label use [Unknown]
